FAERS Safety Report 15269892 (Version 1)
Quarter: 2018Q3

REPORT INFORMATION
  Report Type: Spontaneous
  Country: US (occurrence: US)
  Receive Date: 20180726
  Receipt Date: 20180726
  Transmission Date: 20181010
  Serious: No
  Sender: FDA-Public Use
  Company Number: None

PATIENT
  Age: 88 Year
  Sex: Female

DRUGS (4)
  1. LETAIRIS [Concomitant]
     Active Substance: AMBRISENTAN
  2. FUROSEMIDE. [Concomitant]
     Active Substance: FUROSEMIDE
  3. ADCIRCA [Suspect]
     Active Substance: TADALAFIL
     Route: 048
  4. ELIQUIS [Concomitant]
     Active Substance: APIXABAN

REACTIONS (3)
  - Headache [None]
  - Lethargy [None]
  - Tremor [None]

NARRATIVE: CASE EVENT DATE: 20180711
